FAERS Safety Report 21486716 (Version 2)
Quarter: 2022Q4

REPORT INFORMATION
  Report Type: Spontaneous
  Country: ES (occurrence: ES)
  Receive Date: 20221020
  Receipt Date: 20221026
  Transmission Date: 20230113
  Serious: Yes (Hospitalization)
  Sender: FDA-Public Use
  Company Number: ES-MLMSERVICE-20221011-3842285-1

PATIENT
  Age: 34 Year
  Sex: Female

DRUGS (3)
  1. VENLAFAXINE [Suspect]
     Active Substance: VENLAFAXINE HYDROCHLORIDE
     Indication: Suicidal ideation
     Dosage: INGESTED
     Route: 048
  2. ETHYLENE GLYCOL [Suspect]
     Active Substance: ETHYLENE GLYCOL
     Indication: Suicidal ideation
     Dosage: TWO GLASSES
     Route: 048
  3. CLORAZEPATE DIPOTASSIUM [Suspect]
     Active Substance: CLORAZEPATE DIPOTASSIUM
     Indication: Suicidal ideation
     Dosage: INGESTED
     Route: 048

REACTIONS (5)
  - Toxicity to various agents [Recovering/Resolving]
  - Lethargy [Recovering/Resolving]
  - Slow response to stimuli [Recovering/Resolving]
  - Metabolic acidosis [Recovering/Resolving]
  - Hyperventilation [Recovering/Resolving]
